FAERS Safety Report 7249236-5 (Version None)
Quarter: 2011Q1

REPORT INFORMATION
  Report Type: 
  Country: None (occurrence: None)
  Receive Date: 20110118
  Receipt Date: 20101221
  Transmission Date: 20110831
  Serious: Yes (Hospitalization)
  Sender: FDA-Public Use
  Company Number: 003542

PATIENT
  Sex: Female

DRUGS (10)
  1. CARBIDOPA AND LEVODOPA [Concomitant]
  2. SELEGILINE HYDROCHLORIDE [Concomitant]
  3. ENTACAPONE [Concomitant]
  4. ROTIGOTINE (ROTIGOTINE) [Suspect]
     Indication: PARKINSON'S DISEASE
     Dosage: SEE IMAGE
     Route: 062
     Dates: start: 20091124, end: 20091201
  5. ROTIGOTINE (ROTIGOTINE) [Suspect]
     Indication: PARKINSON'S DISEASE
     Dosage: SEE IMAGE
     Route: 062
     Dates: start: 20091222, end: 20091229
  6. ROTIGOTINE (ROTIGOTINE) [Suspect]
     Indication: PARKINSON'S DISEASE
     Dosage: SEE IMAGE
     Route: 062
     Dates: start: 20091201, end: 20091208
  7. ROTIGOTINE (ROTIGOTINE) [Suspect]
     Indication: PARKINSON'S DISEASE
     Dosage: SEE IMAGE
     Route: 062
     Dates: start: 20091214, end: 20091221
  8. ROTIGOTINE (ROTIGOTINE) [Suspect]
     Indication: PARKINSON'S DISEASE
     Dosage: SEE IMAGE
     Route: 062
     Dates: start: 20091117, end: 20091124
  9. ROTIGOTINE (ROTIGOTINE) [Suspect]
     Indication: PARKINSON'S DISEASE
     Dosage: SEE IMAGE
     Route: 062
     Dates: start: 20091208, end: 20091214
  10. FAMOTIDINE [Concomitant]

REACTIONS (10)
  - NAUSEA [None]
  - PLATELET COUNT DECREASED [None]
  - ANXIETY [None]
  - GASTRITIS ATROPHIC [None]
  - BALANCE DISORDER [None]
  - ANAEMIA [None]
  - GASTRIC ULCER HAEMORRHAGE [None]
  - DELIRIUM [None]
  - GASTRIC ULCER HELICOBACTER [None]
  - STRESS [None]
